FAERS Safety Report 10625201 (Version 1)
Quarter: 2014Q4

REPORT INFORMATION
  Report Type: Spontaneous
  Country: JP (occurrence: JP)
  Receive Date: 20141204
  Receipt Date: 20141204
  Transmission Date: 20150529
  Serious: Yes (Other)
  Sender: FDA-Public Use
  Company Number: PHHY2014JP156939

PATIENT
  Age: 85 Year
  Sex: Female
  Weight: 41 kg

DRUGS (29)
  1. EXELON PATCH [Suspect]
     Active Substance: RIVASTIGMINE
     Indication: OFF LABEL USE
     Dosage: 4.6 MG/24 HOURS  (9 MG DAILY)
     Route: 062
     Dates: start: 20130221, end: 20130320
  2. EXELON PATCH [Suspect]
     Active Substance: RIVASTIGMINE
     Dosage: 6.9 MG/24 HOURS  (13.5 MG DAILY)
     Route: 062
     Dates: start: 20130711, end: 20130814
  3. EURODIN [Concomitant]
     Active Substance: ESTAZOLAM
     Indication: MENTAL DISORDER
     Dosage: 2 MG, UNK
     Route: 048
  4. SENNARIDE [Concomitant]
     Active Substance: SENNOSIDES A AND B
     Indication: CONSTIPATION
     Dosage: 48 MG, UNK
     Route: 048
     Dates: end: 20130530
  5. TAIPROTON [Concomitant]
     Active Substance: LANSOPRAZOLE
     Indication: GASTROOESOPHAGEAL REFLUX DISEASE
     Dosage: 15 MG, UNK
     Route: 048
  6. LECICARBON [Concomitant]
     Active Substance: SODIUM BICARBONATE\SODIUM PHOSPHATE, MONOBASIC
     Indication: CONSTIPATION
     Dosage: UNK
     Route: 065
     Dates: start: 20140301
  7. AZUNOL [Concomitant]
     Active Substance: SODIUM GUALENATE
     Indication: DERMATITIS
     Dosage: UNK
     Route: 065
     Dates: start: 20140419
  8. MOSAPRIDE CITRATE [Concomitant]
     Active Substance: MOSAPRIDE CITRATE
     Indication: DECREASED APPETITE
     Dosage: 15 MG, UNK
     Route: 065
     Dates: start: 20140510
  9. EXELON PATCH [Suspect]
     Active Substance: RIVASTIGMINE
     Dosage: 4.6 MG/24 HOURS  (9 MG DAILY)
     Route: 062
     Dates: start: 20130815, end: 20140114
  10. NEODOPASTON [Concomitant]
     Active Substance: CARBIDOPA\LEVODOPA
     Indication: PARKINSON^S DISEASE
     Dosage: 4.5 DF, UNK
     Route: 065
  11. INTEBAN [Concomitant]
     Active Substance: INDOMETHACIN
     Indication: MYALGIA
     Dosage: UNK
     Route: 065
     Dates: start: 20140301
  12. EXELON PATCH [Suspect]
     Active Substance: RIVASTIGMINE
     Indication: DEMENTIA WITH LEWY BODIES
     Dosage: 1.9 MG/24 HOURS (4.5 MG DAILY)
     Route: 062
     Dates: start: 20130117, end: 20130220
  13. MAGMITT [Concomitant]
     Active Substance: MAGNESIUM OXIDE
     Indication: CONSTIPATION
     Dosage: 990 MG, UNK
     Route: 048
  14. MEDIPEACE [Concomitant]
     Active Substance: ETIZOLAM
     Indication: MENTAL DISORDER
     Route: 048
  15. EXELON PATCH [Suspect]
     Active Substance: RIVASTIGMINE
     Dosage: 6.9 MG/24 HOURS  (13.5 MG DAILY)
     Route: 062
     Dates: start: 20130321, end: 20130515
  16. COMTAN [Concomitant]
     Active Substance: ENTACAPONE
     Indication: PARKINSON^S DISEASE
     Dosage: 300 MG, UNK
     Route: 048
  17. EXELON PATCH [Suspect]
     Active Substance: RIVASTIGMINE
     Dosage: 1.9 MG/24 HOURS (4.5 MG DAILY)
     Route: 062
     Dates: start: 20140115
  18. PANTOSIN [Concomitant]
     Active Substance: PANTETHINE
     Indication: HYPOVITAMINOSIS
     Dosage: 3 G, UNK
     Route: 048
  19. RESTAMIN [Concomitant]
     Active Substance: DIPHENHYDRAMINE
     Indication: PRURITUS
     Dosage: UNK
     Route: 065
     Dates: start: 20140321
  20. EXELON PATCH [Suspect]
     Active Substance: RIVASTIGMINE
     Dosage: 9.5 MG/ 24 HOURS (18 MG DAILY)
     Route: 062
     Dates: start: 20130516, end: 20130710
  21. REMERON [Concomitant]
     Active Substance: MIRTAZAPINE
     Indication: MENTAL DISORDER
     Dosage: 30 MG, UNK
     Route: 048
  22. MOHRUS [Concomitant]
     Active Substance: KETOPROFEN
     Indication: MYALGIA
     Dosage: UNK
     Route: 065
     Dates: start: 20140301
  23. SEPAZON [Concomitant]
     Active Substance: CLOXAZOLAM
     Indication: MENTAL DISORDER
     Dosage: 2 MG, UNK
     Route: 065
     Dates: start: 20140516, end: 20140612
  24. GLYCERIN. [Concomitant]
     Active Substance: GLYCERIN
     Indication: CONSTIPATION
     Route: 054
  25. ETIZOLAM [Concomitant]
     Active Substance: ETIZOLAM
     Indication: INSOMNIA
     Dosage: UNK
     Route: 065
     Dates: start: 20140221
  26. THYRADIN S [Concomitant]
     Active Substance: LEVOTHYROXINE SODIUM
     Indication: HYPOTHYROIDISM
     Dosage: 25 MG, UNK
     Route: 048
  27. GASMOTIN [Concomitant]
     Active Substance: MOSAPRIDE CITRATE
     Indication: DECREASED APPETITE
     Dosage: 15 MG, UNK
     Route: 048
     Dates: end: 20130509
  28. VESICARE [Concomitant]
     Active Substance: SOLIFENACIN SUCCINATE
     Indication: HYPERTONIC BLADDER
     Dosage: 2.5 MG, UNK
     Route: 048
  29. HYALEIN [Concomitant]
     Active Substance: HYALURONATE SODIUM
     Indication: DRY EYE
     Route: 047

REACTIONS (3)
  - Parkinsonism [Recovering/Resolving]
  - Delusion [Recovering/Resolving]
  - Blood cholinesterase decreased [Recovered/Resolved]

NARRATIVE: CASE EVENT DATE: 20130711
